FAERS Safety Report 4710782-7 (Version None)
Quarter: 2005Q3

REPORT INFORMATION
  Report Type: 
  Country: None (occurrence: None)
  Receive Date: 20050707
  Receipt Date: 20050620
  Transmission Date: 20060218
  Serious: Yes (Other)
  Sender: FDA-Public Use
  Company Number: EWC050644572

PATIENT
  Age: 64 Year
  Sex: Male

DRUGS (4)
  1. PERMAX [Suspect]
     Indication: PARKINSON'S DISEASE
     Dosage: 1 MG/3 DAY
     Dates: start: 19970805, end: 20041126
  2. ELDEPRYL  (SELEGILINE HYROCHLORIDE) [Concomitant]
  3. SINEMET [Concomitant]
  4. APURIN (ALLOPURINOL) [Concomitant]

REACTIONS (2)
  - PLEURAL FIBROSIS [None]
  - RESTRICTIVE PULMONARY DISEASE [None]
